FAERS Safety Report 19818785 (Version 1)
Quarter: 2021Q3

REPORT INFORMATION
  Report Type: Spontaneous
  Country: US (occurrence: US)
  Receive Date: 20210912
  Receipt Date: 20210912
  Transmission Date: 20211014
  Serious: No
  Sender: FDA-Public Use
  Company Number: US-ASTRAZENECA-2021A695639

PATIENT
  Sex: Female

DRUGS (1)
  1. BUDESONIDE AND FORMOTEROL [Suspect]
     Active Substance: BUDESONIDE\FORMOTEROL
     Dosage: UNKNOWN UNKNOWN
     Route: 055
     Dates: start: 20210822

REACTIONS (1)
  - Fatigue [Unknown]
